FAERS Safety Report 6291557-7 (Version None)
Quarter: 2009Q3

REPORT INFORMATION
  Report Type: 
  Country: None (occurrence: None)
  Receive Date: 20090730
  Receipt Date: 20090720
  Transmission Date: 20100115
  Serious: Yes (Other)
  Sender: FDA-Public Use
  Company Number: PHHY2009US30155

PATIENT
  Age: 70 Year
  Sex: Female

DRUGS (1)
  1. RECLAST [Suspect]
     Dosage: 5 MG, UNK
     Route: 042

REACTIONS (9)
  - CHILLS [None]
  - DYSPNOEA AT REST [None]
  - GASTROINTESTINAL DISORDER [None]
  - MUSCULOSKELETAL PAIN [None]
  - NIGHT SWEATS [None]
  - PLEURAL EFFUSION [None]
  - PULMONARY PERCUSSION TEST ABNORMALITY [None]
  - PYREXIA [None]
  - SLUGGISHNESS [None]
